FAERS Safety Report 18057626 (Version 1)
Quarter: 2020Q3

REPORT INFORMATION
  Report Type: Spontaneous
  Country: US (occurrence: US)
  Receive Date: 20200723
  Receipt Date: 20200723
  Transmission Date: 20201103
  Serious: Yes (Hospitalization)
  Sender: FDA-Public Use
  Company Number: US-GLAXOSMITHKLINE-US2020135596

PATIENT
  Sex: Female

DRUGS (1)
  1. BREO ELLIPTA [Suspect]
     Active Substance: FLUTICASONE FUROATE\VILANTEROL TRIFENATATE
     Indication: PRODUCT USED FOR UNKNOWN INDICATION
     Dosage: 1 PUFF(S), QD
     Route: 055

REACTIONS (9)
  - Cardiac ventricular disorder [Recovered/Resolved]
  - Dyspnoea [Unknown]
  - Candida infection [Unknown]
  - Cough [Unknown]
  - Bronchitis [Unknown]
  - Decreased immune responsiveness [Unknown]
  - Blood immunoglobulin G decreased [Unknown]
  - Fungal infection [Not Recovered/Not Resolved]
  - Blood immunoglobulin E decreased [Unknown]

NARRATIVE: CASE EVENT DATE: 2020
